FAERS Safety Report 11190923 (Version 4)
Quarter: 2015Q3

REPORT INFORMATION
  Report Type: Spontaneous
  Country: US (occurrence: US)
  Receive Date: 20150615
  Receipt Date: 20150821
  Transmission Date: 20151125
  Serious: Yes (Other)
  Sender: FDA-Public Use
  Company Number: US-GLAXOSMITHKLINE-US2015080873

PATIENT
  Sex: Male

DRUGS (11)
  1. PAROXETINE [Concomitant]
     Active Substance: PAROXETINE\PAROXETINE HYDROCHLORIDE
  2. SYMBICORT [Concomitant]
     Active Substance: BUDESONIDE\FORMOTEROL FUMARATE DIHYDRATE
  3. ANORO ELLIPTA [Suspect]
     Active Substance: UMECLIDINIUM BROMIDE\VILANTEROL TRIFENATATE
     Indication: CHRONIC OBSTRUCTIVE PULMONARY DISEASE
     Dosage: 1 DF, 1D
     Dates: start: 201505, end: 2015
  4. COMBIVENT [Concomitant]
     Active Substance: ALBUTEROL SULFATE\IPRATROPIUM BROMIDE
  5. NIFEDIPINE. [Concomitant]
     Active Substance: NIFEDIPINE
  6. METOLAZONE. [Concomitant]
     Active Substance: METOLAZONE
  7. ASPIRIN. [Concomitant]
     Active Substance: ASPIRIN
  8. DIAZEPAM. [Concomitant]
     Active Substance: DIAZEPAM
  9. PROTONIX [Concomitant]
     Active Substance: PANTOPRAZOLE SODIUM
  10. FUROSEMIDE. [Concomitant]
     Active Substance: FUROSEMIDE
  11. POTASSIUM [Concomitant]
     Active Substance: POTASSIUM

REACTIONS (11)
  - Ocular hyperaemia [Not Recovered/Not Resolved]
  - Eyelids pruritus [Recovered/Resolved]
  - Acne [Not Recovered/Not Resolved]
  - Eye pruritus [Recovered/Resolved]
  - Conjunctivitis allergic [Recovered/Resolved]
  - Eye swelling [Not Recovered/Not Resolved]
  - Rash [Not Recovered/Not Resolved]
  - Drug hypersensitivity [Recovered/Resolved]
  - Retinopathy hypertensive [Recovered/Resolved]
  - Dermatitis atopic [Recovered/Resolved]
  - Intraocular pressure increased [Not Recovered/Not Resolved]
